FAERS Safety Report 9966981 (Version 1)
Quarter: 2014Q1

REPORT INFORMATION
  Report Type: Other
  Country: US (occurrence: US)
  Receive Date: 20140305
  Receipt Date: 20140305
  Transmission Date: 20141002
  Serious: Yes (Death)
  Sender: FDA-Public Use
  Company Number: US-FRI-1000054813

PATIENT
  Age: 33 Year
  Sex: Female

DRUGS (6)
  1. CITALOPRAM [Suspect]
  2. METHADONE [Suspect]
  3. DIAZEPAM [Suspect]
  4. BUPROPION [Suspect]
  5. AMITRIPTYLINE [Suspect]
  6. VENLAFAXINE [Suspect]

REACTIONS (3)
  - Completed suicide [Fatal]
  - Cardiac arrest [None]
  - Respiratory arrest [None]
